FAERS Safety Report 10028468 (Version 1)
Quarter: 2014Q1

REPORT INFORMATION
  Report Type: Spontaneous
  Country: FR (occurrence: FR)
  Receive Date: 20140321
  Receipt Date: 20140321
  Transmission Date: 20141002
  Serious: Yes (Other)
  Sender: FDA-Public Use
  Company Number: FR-BRISTOL-MYERS SQUIBB COMPANY-20477386

PATIENT
  Age: 71 Year
  Sex: Female

DRUGS (4)
  1. COUMADINE [Suspect]
     Indication: PROPHYLAXIS
     Dosage: TABS?INTERPTED:NOV12, 1 TABLET A DAY AND 3/4 TABLET THE NEXT DAY
     Route: 048
     Dates: start: 201202
  2. IXPRIM [Concomitant]
  3. TEMESTA [Concomitant]
  4. OGASTORO [Concomitant]

REACTIONS (5)
  - Arthropathy [Unknown]
  - International normalised ratio fluctuation [Unknown]
  - Alopecia [Unknown]
  - Gastrooesophageal reflux disease [Unknown]
  - Liver function test abnormal [Unknown]
